FAERS Safety Report 6560939-8 (Version None)
Quarter: 2010Q1

REPORT INFORMATION
  Report Type: 
  Country: None (occurrence: None)
  Receive Date: 20100130
  Receipt Date: 20090930
  Transmission Date: 20100710
  Serious: No
  Sender: FDA-Public Use
  Company Number: US-ABBOTT-09P-163-0600459-00

PATIENT
  Sex: Female
  Weight: 53.572 kg

DRUGS (1)
  1. HUMIRA [Suspect]
     Indication: RHEUMATOID ARTHRITIS
     Dates: start: 20090814

REACTIONS (7)
  - BACK PAIN [None]
  - FATIGUE [None]
  - GRIP STRENGTH DECREASED [None]
  - INFLUENZA LIKE ILLNESS [None]
  - LETHARGY [None]
  - NAUSEA [None]
  - PYREXIA [None]
